FAERS Safety Report 7635824-0 (Version None)
Quarter: 2011Q3

REPORT INFORMATION
  Report Type: 
  Country: None (occurrence: None)
  Receive Date: 20110726
  Receipt Date: 20110715
  Transmission Date: 20111222
  Serious: Yes (Other)
  Sender: FDA-Public Use
  Company Number: CA-JNJFOC-20110707541

PATIENT
  Sex: Male
  Weight: 92.6 kg

DRUGS (2)
  1. REMICADE [Suspect]
     Route: 042
     Dates: start: 20070411
  2. REMICADE [Suspect]
     Indication: ANKYLOSING SPONDYLITIS
     Dosage: INFUSION #35
     Route: 042
     Dates: start: 20110531

REACTIONS (1)
  - MEDICAL DEVICE COMPLICATION [None]
